FAERS Safety Report 19369865 (Version 3)
Quarter: 2021Q3

REPORT INFORMATION
  Report Type: Spontaneous
  Country: DE (occurrence: DE)
  Receive Date: 20210604
  Receipt Date: 20210828
  Transmission Date: 20211014
  Serious: Yes (Hospitalization, Other)
  Sender: FDA-Public Use
  Company Number: DE-ROCHE-2841201

PATIENT
  Age: 49 Year
  Sex: Female
  Weight: 66 kg

DRUGS (12)
  1. ELIQUIS [Concomitant]
     Active Substance: APIXABAN
  2. OCREVUS [Suspect]
     Active Substance: OCRELIZUMAB
     Route: 042
     Dates: start: 20180322
  3. XARELTO [Concomitant]
     Active Substance: RIVAROXABAN
     Indication: PULMONARY EMBOLISM
  4. IODIDE [Concomitant]
     Active Substance: IODINE
     Route: 048
  5. PREDNISOLONE. [Concomitant]
     Active Substance: PREDNISOLONE
     Indication: PREMEDICATION
  6. XARELTO [Concomitant]
     Active Substance: RIVAROXABAN
     Indication: DEEP VEIN THROMBOSIS
     Route: 048
     Dates: start: 202105
  7. DEKRISTOL [Concomitant]
     Active Substance: CHOLECALCIFEROL
  8. CETIRIZIN [Concomitant]
     Active Substance: CETIRIZINE HYDROCHLORIDE
     Indication: PREMEDICATION
  9. GLATIRAMERACETAT [Concomitant]
  10. PARACETAMOL [Concomitant]
     Active Substance: ACETAMINOPHEN
     Indication: PREMEDICATION
  11. OCREVUS [Suspect]
     Active Substance: OCRELIZUMAB
     Indication: RELAPSING MULTIPLE SCLEROSIS
     Route: 042
     Dates: start: 20180322
  12. FAMOTIDIN [Concomitant]
     Active Substance: FAMOTIDINE
     Indication: PREMEDICATION

REACTIONS (20)
  - Hepatic enzyme increased [Recovered/Resolved]
  - C-reactive protein increased [Not Recovered/Not Resolved]
  - Cough [Unknown]
  - Multiple sclerosis relapse [Unknown]
  - Eosinophilic fasciitis [Not Recovered/Not Resolved]
  - Eosinophilia [Not Recovered/Not Resolved]
  - Bone pain [Unknown]
  - Toxicity to various agents [Recovered/Resolved]
  - Deep vein thrombosis [Unknown]
  - Weight decreased [Not Recovered/Not Resolved]
  - Cardiac failure [Unknown]
  - Blood iron decreased [Unknown]
  - Protein total decreased [Unknown]
  - Vitamin D decreased [Unknown]
  - Tachycardia [Not Recovered/Not Resolved]
  - Blood alkaline phosphatase increased [Unknown]
  - Pulmonary embolism [Unknown]
  - Pneumonia [Unknown]
  - Oedema peripheral [Unknown]
  - Leukocytosis [Unknown]

NARRATIVE: CASE EVENT DATE: 20180424
